FAERS Safety Report 4464662-5 (Version None)
Quarter: 2004Q4

REPORT INFORMATION
  Report Type: 
  Country: None (occurrence: None)
  Receive Date: 20041004
  Receipt Date: 20040923
  Transmission Date: 20050328
  Serious: Yes (Death, Congenital Anomaly)
  Sender: FDA-Public Use
  Company Number: GB-BRISTOL-MYERS SQUIBB COMPANY-12709689

PATIENT

DRUGS (3)
  1. DIDANOSINE [Suspect]
     Route: 064
  2. NEVIRAPINE [Suspect]
     Dosage: STRENGTH = 200 MG
     Route: 064
  3. ZIDOVUDINE [Suspect]
     Route: 064

REACTIONS (6)
  - CONGENITAL ANOMALY [None]
  - DRUG EXPOSURE DURING PREGNANCY [None]
  - PREGNANCY [None]
  - PREMATURE BABY [None]
  - STILLBIRTH [None]
  - ULTRASOUND ANTENATAL SCREEN ABNORMAL [None]
